FAERS Safety Report 25729769 (Version 1)
Quarter: 2025Q3

REPORT INFORMATION
  Report Type: Spontaneous
  Country: CN (occurrence: CN)
  Receive Date: 20250827
  Receipt Date: 20250827
  Transmission Date: 20251020
  Serious: Yes (Hospitalization)
  Sender: NUVATION BIO
  Company Number: CN-Nuvation Bio-2183286

PATIENT
  Age: 53 Year
  Sex: Male
  Weight: 65.00 kg

DRUGS (1)
  1. IBTROZI [Suspect]
     Active Substance: TALETRECTINIB ADIPATE
     Indication: Lung adenocarcinoma
     Dates: start: 20250721, end: 20250804

REACTIONS (1)
  - Pyrexia [Recovered/Resolved]

NARRATIVE: CASE EVENT DATE: 20250802
